FAERS Safety Report 24735411 (Version 2)
Quarter: 2025Q1

REPORT INFORMATION
  Report Type: Spontaneous
  Country: JP (occurrence: JP)
  Receive Date: 20241215
  Receipt Date: 20250119
  Transmission Date: 20250409
  Serious: Yes (Hospitalization)
  Sender: TAKEDA
  Company Number: JP-TAKEDA-2024TJP016078

PATIENT
  Age: 17 Year
  Sex: Female

DRUGS (7)
  1. INTUNIV [Suspect]
     Active Substance: GUANFACINE HYDROCHLORIDE
     Indication: Product used for unknown indication
  2. INTUNIV [Suspect]
     Active Substance: GUANFACINE HYDROCHLORIDE
  3. INTUNIV [Suspect]
     Active Substance: GUANFACINE HYDROCHLORIDE
  4. INTUNIV [Suspect]
     Active Substance: GUANFACINE HYDROCHLORIDE
  5. INTUNIV [Suspect]
     Active Substance: GUANFACINE HYDROCHLORIDE
  6. QUETIAPINE FUMARATE [Suspect]
     Active Substance: QUETIAPINE FUMARATE
     Indication: Product used for unknown indication
  7. LEXAPRO [Suspect]
     Active Substance: ESCITALOPRAM OXALATE
     Indication: Product used for unknown indication

REACTIONS (4)
  - Overdose [Recovered/Resolved]
  - Hypotension [Recovered/Resolved]
  - Product prescribing error [Unknown]
  - Off label use [Unknown]
